FAERS Safety Report 11402833 (Version 1)
Quarter: 2015Q3

REPORT INFORMATION
  Report Type: Spontaneous
  Country: US (occurrence: None)
  Receive Date: 20150819
  Receipt Date: 20150819
  Transmission Date: 20151125
  Serious: No
  Sender: FDA-Public Use
  Company Number: None

PATIENT
  Age: 76 Year
  Sex: Male

DRUGS (7)
  1. ALBUTEROL NEBULIZER SOLUTION [Concomitant]
     Active Substance: ALBUTEROL
  2. FOLIC ACID 1MG [Concomitant]
  3. FUROSEMIDE 20MG [Concomitant]
     Active Substance: FUROSEMIDE
  4. TOBRAMYCIN NEBULIZER SOLN. 300MG/5ML AKORN [Suspect]
     Active Substance: TOBRAMYCIN
     Indication: BRONCHIECTASIS
     Route: 055
     Dates: start: 20150813
  5. PRAVASTATIN [Concomitant]
     Active Substance: PRAVASTATIN\PRAVASTATIN SODIUM
  6. MUCINEX [Concomitant]
     Active Substance: GUAIFENESIN
  7. MVI [Concomitant]
     Active Substance: VITAMINS

REACTIONS (2)
  - Abdominal pain upper [None]
  - Toothache [None]

NARRATIVE: CASE EVENT DATE: 20150815
